FAERS Safety Report 7085047-1 (Version None)
Quarter: 2010Q4

REPORT INFORMATION
  Report Type: 
  Country: None (occurrence: None)
  Receive Date: 20101105
  Receipt Date: 20101028
  Transmission Date: 20110411
  Serious: Yes (Other)
  Sender: FDA-Public Use
  Company Number: CO-BAYER-201020481LA

PATIENT
  Age: 69 Year
  Sex: Male
  Weight: 56 kg

DRUGS (1)
  1. NEXAVAR [Suspect]
     Indication: RENAL CANCER

REACTIONS (2)
  - ARRHYTHMIA [None]
  - DECREASED APPETITE [None]
